FAERS Safety Report 6004040-0 (Version None)
Quarter: 2008Q4

REPORT INFORMATION
  Report Type: 
  Country: None (occurrence: None)
  Receive Date: 20081216
  Receipt Date: 20081212
  Transmission Date: 20090506
  Serious: Yes (Death)
  Sender: FDA-Public Use
  Company Number: A0760568A

PATIENT
  Age: 61 Year
  Sex: Male
  Weight: 73 kg

DRUGS (2)
  1. SERETIDE [Suspect]
     Indication: PNEUMONIA
     Route: 055
     Dates: start: 20081120, end: 20081205
  2. PREDSIM [Concomitant]
     Dates: start: 20081001, end: 20081205

REACTIONS (1)
  - TRACHEAL CANCER [None]
